FAERS Safety Report 6865199-6 (Version None)
Quarter: 2010Q3

REPORT INFORMATION
  Report Type: 
  Country: None (occurrence: None)
  Receive Date: 20100721
  Receipt Date: 20080508
  Transmission Date: 20110219
  Serious: No
  Sender: FDA-Public Use
  Company Number: US-PFIZER INC-2008032791

PATIENT
  Sex: Male
  Weight: 109.09 kg

DRUGS (2)
  1. CHANTIX [Suspect]
     Indication: SMOKING CESSATION THERAPY
     Dates: start: 20070601
  2. MULTI-VITAMINS [Concomitant]

REACTIONS (5)
  - AGITATION [None]
  - DRUG DOSE OMISSION [None]
  - FLUSHING [None]
  - MOOD ALTERED [None]
  - UNEVALUABLE EVENT [None]
